FAERS Safety Report 9692586 (Version 1)
Quarter: 2013Q4

REPORT INFORMATION
  Report Type: Spontaneous
  Country: US (occurrence: None)
  Receive Date: 20131115
  Receipt Date: 20131115
  Transmission Date: 20140711
  Serious: Yes (Other)
  Sender: FDA-Public Use
  Company Number: None

PATIENT
  Age: 69 Year
  Sex: Female

DRUGS (1)
  1. FORTEO 20 MCG SQ DAILY LILLY [Suspect]
     Indication: OSTEOPOROSIS
     Dates: start: 20130222, end: 20131031

REACTIONS (4)
  - Pain [None]
  - Fatigue [None]
  - Dizziness [None]
  - Heart rate irregular [None]
